FAERS Safety Report 13406796 (Version 1)
Quarter: 2017Q2

REPORT INFORMATION
  Report Type: Report from Study
  Country: US (occurrence: US)
  Receive Date: 20170405
  Receipt Date: 20170405
  Transmission Date: 20170830
  Serious: No
  Sender: FDA-Public Use
  Company Number: US-009507513-1703USA011388

PATIENT
  Sex: Female

DRUGS (1)
  1. NEXPLANON [Suspect]
     Active Substance: ETONOGESTREL
     Dosage: UNK
     Route: 059

REACTIONS (6)
  - Frustration tolerance decreased [Unknown]
  - Acne [Unknown]
  - Feeling abnormal [Unknown]
  - Hypomenorrhoea [Unknown]
  - Sensation of foreign body [Unknown]
  - Weight increased [Unknown]
